FAERS Safety Report 4658124-X (Version None)
Quarter: 2005Q2

REPORT INFORMATION
  Report Type: 
  Country: None (occurrence: None)
  Receive Date: 20050504
  Receipt Date: 20040517
  Transmission Date: 20051028
  Serious: Yes (Other)
  Sender: FDA-Public Use
  Company Number: PHEH2004US05397

PATIENT
  Age: 75 Year
  Sex: Male

DRUGS (1)
  1. DIOVAN HCT [Suspect]
     Dosage: 1 TABLET/QD, ORAL
     Route: 048
     Dates: start: 20040513

REACTIONS (1)
  - HYPERTENSION [None]
